FAERS Safety Report 20975576 (Version 1)
Quarter: 2022Q2

REPORT INFORMATION
  Report Type: Spontaneous
  Country: AU (occurrence: None)
  Receive Date: 20220617
  Receipt Date: 20220617
  Transmission Date: 20220721
  Serious: Yes (Hospitalization)
  Sender: FDA-Public Use
  Company Number: 2022A195671

PATIENT
  Age: 62 Year
  Sex: Male
  Weight: 85 kg

DRUGS (13)
  1. DAPAGLIFLOZIN [Suspect]
     Active Substance: DAPAGLIFLOZIN
     Indication: Ejection fraction
     Route: 048
     Dates: start: 20211021
  2. DAPAGLIFLOZIN [Suspect]
     Active Substance: DAPAGLIFLOZIN
     Indication: Ejection fraction
     Route: 048
     Dates: start: 20220331
  3. METHYLPREDNISOLONE ACEPONATE [Concomitant]
     Active Substance: METHYLPREDNISOLONE ACEPONATE
     Dosage: 0.1 PERCENT OINTMENT APPLY THINLY ONCE DAILY FOR MAX 12 WKS (ADULTS).
  4. AMIODARONE [Concomitant]
     Active Substance: AMIODARONE
     Dosage: 100MG TABLET 1 TABLET DAILY
  5. APIXABAN [Concomitant]
     Active Substance: APIXABAN
     Dosage: 5MG TABLET 1 TABLET TWICE A DAY.
  6. ASPIRIN [Concomitant]
     Active Substance: ASPIRIN
     Dosage: 100MG TABLET 1 TABLET DAILY
  7. ATORVASTATIN [Concomitant]
     Active Substance: ATORVASTATIN
     Dosage: 40MG TABLET 1 TABLET IN THE EVENING
  8. BISOPROLOL [Concomitant]
     Active Substance: BISOPROLOL
     Dosage: 5MG TABLET, 1 TABLET IN THE MORNING
  9. EPLERENONE [Concomitant]
     Active Substance: EPLERENONE
     Dosage: 25MG TABLET HALF DAILY
  10. NITROGLYCERIN [Concomitant]
     Active Substance: NITROGLYCERIN
     Dosage: 400MCG/DOSE SPRAY P.R.N
  11. METFORMIN [Concomitant]
     Active Substance: METFORMIN HYDROCHLORIDE
     Dosage: 500MG TABLET, EXTENDED RELEASE 1 TABLET DAILY
  12. TELMISARTAN / AMLODIPINE [Concomitant]
     Dosage: 80MG; 10MG TABLET 1 TABLET DAILY
  13. VIAGRA [Concomitant]
     Active Substance: SILDENAFIL CITRATE

REACTIONS (3)
  - Orchitis [Not Recovered/Not Resolved]
  - Urinary tract infection [Recovered/Resolved]
  - Fistula [Unknown]

NARRATIVE: CASE EVENT DATE: 20220127
